FAERS Safety Report 6149716-X (Version None)
Quarter: 2009Q2

REPORT INFORMATION
  Report Type: 
  Country: None (occurrence: None)
  Receive Date: 20090407
  Receipt Date: 20090407
  Transmission Date: 20091009
  Serious: Yes (Other)
  Sender: FDA-Public Use
  Company Number: None

PATIENT
  Age: 43 Year
  Sex: Male
  Weight: 124.0588 kg

DRUGS (2)
  1. HYDROCHLOROTHIAZIDE [Suspect]
     Indication: DIURETIC THERAPY
     Dosage: 25 MG 1 TIME A DAY PO
     Route: 048
     Dates: start: 20090314, end: 20090405
  2. HYDROCHLOROTHIAZIDE [Suspect]
     Indication: HYPERTENSION
     Dosage: 25 MG 1 TIME A DAY PO
     Route: 048
     Dates: start: 20090314, end: 20090405

REACTIONS (14)
  - ACTIVITIES OF DAILY LIVING IMPAIRED [None]
  - ANOREXIA [None]
  - CONSTIPATION [None]
  - DIZZINESS POSTURAL [None]
  - DRY THROAT [None]
  - DYSPNOEA [None]
  - FAECES HARD [None]
  - HEADACHE [None]
  - INSOMNIA [None]
  - IRRITABILITY [None]
  - MICTURITION DISORDER [None]
  - MUSCLE SPASMS [None]
  - PROCTALGIA [None]
  - THROAT IRRITATION [None]
